FAERS Safety Report 6439253-7 (Version None)
Quarter: 2009Q4

REPORT INFORMATION
  Report Type: 
  Country: None (occurrence: None)
  Receive Date: 20091113
  Receipt Date: 20091102
  Transmission Date: 20100525
  Serious: Yes (Other)
  Sender: FDA-Public Use
  Company Number: KR-PFIZER INC-2009292046

PATIENT
  Sex: Male

DRUGS (2)
  1. DOXAZOSIN MESILATE [Suspect]
     Route: 048
  2. TERAZOSIN HYDROCHLORIDE [Concomitant]
     Dosage: UNK
     Route: 048

REACTIONS (3)
  - DIABETES MELLITUS [None]
  - HYPERTENSION [None]
  - PROTEINURIA [None]
